FAERS Safety Report 8176761-5 (Version None)
Quarter: 2012Q1

REPORT INFORMATION
  Report Type: 
  Country: None (occurrence: None)
  Receive Date: 20120301
  Receipt Date: 20120210
  Transmission Date: 20120608
  Serious: No
  Sender: FDA-Public Use
  Company Number: US-ROXANE LABORATORIES, INC.-2012-RO-00643RO

PATIENT
  Age: 38 Year
  Sex: Male

DRUGS (3)
  1. LITHIUM CARBONATE [Suspect]
     Indication: BIPOLAR I DISORDER
     Dosage: 900 MG
     Route: 048
     Dates: start: 20120123
  2. WELLBUTRIN [Concomitant]
  3. ANTIHISTAMINE [Concomitant]
     Indication: HYPERSENSITIVITY

REACTIONS (11)
  - INCONTINENCE [None]
  - TREMOR [None]
  - DIZZINESS [None]
  - DISTURBANCE IN ATTENTION [None]
  - VISUAL IMPAIRMENT [None]
  - EYES SUNKEN [None]
  - DARK CIRCLES UNDER EYES [None]
  - IRRITABILITY [None]
  - NAUSEA [None]
  - ACTIVITIES OF DAILY LIVING IMPAIRED [None]
  - WEIGHT DECREASED [None]
